FAERS Safety Report 22173660 (Version 1)
Quarter: 2023Q2

REPORT INFORMATION
  Report Type: Spontaneous
  Country: US (occurrence: US)
  Receive Date: 20230404
  Receipt Date: 20230404
  Transmission Date: 20230722
  Serious: Yes (Other)
  Sender: FDA-Public Use
  Company Number: US-APIL-2310399US

PATIENT
  Sex: Female

DRUGS (2)
  1. QULIPTA [Suspect]
     Active Substance: ATOGEPANT
     Indication: Migraine
     Dosage: UNK
     Dates: start: 20220606, end: 20230105
  2. UBRELVY [Suspect]
     Active Substance: UBROGEPANT
     Indication: Migraine
     Dosage: UNK
     Dates: start: 20230106

REACTIONS (10)
  - Gastric disorder [Unknown]
  - Product use issue [Unknown]
  - Abdominal pain upper [Unknown]
  - Vomiting [Unknown]
  - Feeding disorder [Unknown]
  - Parosmia [Unknown]
  - Weight decreased [Unknown]
  - Migraine [Unknown]
  - Nausea [Unknown]
  - Drug ineffective [Unknown]

NARRATIVE: CASE EVENT DATE: 20221130
